FAERS Safety Report 7382501-X (Version None)
Quarter: 2011Q1

REPORT INFORMATION
  Report Type: 
  Country: None (occurrence: None)
  Receive Date: 20110329
  Receipt Date: 20110318
  Transmission Date: 20110831
  Serious: Yes (Other)
  Sender: FDA-Public Use
  Company Number: DE-BAYER-201014303GPV

PATIENT
  Sex: Male

DRUGS (12)
  1. PANTOZOL [Concomitant]
     Dosage: 40 MG (DAILY DOSE), QD,
     Dates: start: 20100121, end: 20100218
  2. SORAFENIB (RAF KINASE INHIBITOR) [Suspect]
     Route: 048
     Dates: start: 20100404, end: 20100608
  3. SUNITINIB [Suspect]
     Indication: RENAL CELL CARCINOMA
     Route: 048
     Dates: start: 20100702
  4. PANTOZOL [Concomitant]
     Dosage: 80 MG (DAILY DOSE), QD,
     Dates: start: 20100701
  5. SORAFENIB (RAF KINASE INHIBITOR) [Suspect]
     Dates: end: 20100325
  6. BISOPROLOL [Concomitant]
     Dosage: 5 MG (DAILY DOSE), QD,
     Dates: start: 20100218
  7. LOPERAMIDE [Concomitant]
     Dates: start: 20100304
  8. DASATINIB [Concomitant]
     Dates: end: 20100326
  9. SORAFENIB (RAF KINASE INHIBITOR) [Suspect]
     Indication: RENAL CELL CARCINOMA
     Dates: start: 20100102, end: 20100128
  10. AMLODIPINE [Concomitant]
     Dosage: 5 MG (DAILY DOSE), QD,
     Dates: start: 20100121, end: 20100202
  11. UNCODEABLE ^UNCLASSIFIABLE^ [Concomitant]
     Dosage: 20 MG (DAILY DOSE), ,
     Dates: start: 20100218, end: 20100701
  12. RAMIPRIL [Concomitant]
     Dosage: 2.5 MG (DAILY DOSE), ,
     Dates: start: 20100702

REACTIONS (3)
  - URTICARIA [None]
  - DIARRHOEA [None]
  - N-TERMINAL PROHORMONE BRAIN NATRIURETIC PEPTIDE [None]
